FAERS Safety Report 14268943 (Version 1)
Quarter: 2017Q4

REPORT INFORMATION
  Report Type: Spontaneous
  Country: US (occurrence: US)
  Receive Date: 20171211
  Receipt Date: 20171211
  Transmission Date: 20180321
  Serious: Yes (Other)
  Sender: FDA-Public Use
  Company Number: US-BAYER-2017-231656

PATIENT
  Age: 59 Year
  Sex: Female

DRUGS (2)
  1. MIRENA [Suspect]
     Active Substance: LEVONORGESTREL
     Indication: OVARIAN CYST
     Dosage: 20 MCG/24HR, CONT
     Route: 015
     Dates: start: 20171009
  2. MIRENA [Suspect]
     Active Substance: LEVONORGESTREL
     Indication: OVARIAN CYST
     Dosage: 20 MCG/24HR, CONT
     Route: 015
     Dates: start: 20170910

REACTIONS (3)
  - Postmenopausal haemorrhage [None]
  - Off label use [None]
  - Device use issue [None]
